FAERS Safety Report 8867475 (Version 1)
Quarter: 2012Q4

REPORT INFORMATION
  Report Type: 
  Country: US (occurrence: US)
  Receive Date: 20121025
  Receipt Date: 20121025
  Transmission Date: 20130627
  Serious: No
  Sender: FDA-Public Use
  Company Number: US-AMGEN-USASP2012016914

PATIENT
  Age: 68 Year
  Sex: Female
  Weight: 63.49 kg

DRUGS (4)
  1. ENBREL [Suspect]
     Indication: PSORIATIC ARTHROPATHY
     Dosage: 50 mg, qwk
     Route: 058
  2. NEXIUM                             /01479302/ [Concomitant]
     Dosage: 40 mg, UNK
  3. LIPITOR [Concomitant]
     Dosage: 10 mg, UNK
  4. ADVIL                              /00044201/ [Concomitant]
     Dosage: 200 mg, UNK

REACTIONS (2)
  - Influenza [Unknown]
  - Nasopharyngitis [Unknown]
